FAERS Safety Report 12484154 (Version 1)
Quarter: 2016Q2

REPORT INFORMATION
  Report Type: Spontaneous
  Country: US (occurrence: None)
  Receive Date: 20160620
  Receipt Date: 20160620
  Transmission Date: 20160815
  Serious: Yes (Hospitalization)
  Sender: FDA-Public Use
  Company Number: None

PATIENT
  Age: 50 Year
  Sex: Male
  Weight: 74 kg

DRUGS (1)
  1. LISINOPRIL. [Suspect]
     Active Substance: LISINOPRIL
     Indication: CORONARY ARTERIAL STENT INSERTION
     Route: 048
     Dates: start: 20160529, end: 20160602

REACTIONS (2)
  - Lip swelling [None]
  - Angioedema [None]

NARRATIVE: CASE EVENT DATE: 20160602
